APPROVED DRUG PRODUCT: CAVERJECT
Active Ingredient: ALPROSTADIL
Strength: 0.005MG/VIAL
Dosage Form/Route: INJECTABLE;INJECTION
Application: N020379 | Product #003
Applicant: PFIZER INC
Approved: Jun 27, 1996 | RLD: Yes | RS: No | Type: DISCN